FAERS Safety Report 10741441 (Version 1)
Quarter: 2015Q1

REPORT INFORMATION
  Report Type: Spontaneous
  Country: US (occurrence: US)
  Receive Date: 20150127
  Receipt Date: 20150127
  Transmission Date: 20150721
  Serious: Yes (Death, Hospitalization)
  Sender: FDA-Public Use
  Company Number: US-PFIZER INC-2015031382

PATIENT
  Age: 45 Year
  Sex: Male
  Weight: 60 kg

DRUGS (2)
  1. ALIMTA [Concomitant]
     Active Substance: PEMETREXED DISODIUM
     Indication: NEOPLASM MALIGNANT
     Dosage: UNK
     Route: 042
  2. CAMPTOSAR [Suspect]
     Active Substance: IRINOTECAN HYDROCHLORIDE
     Indication: LUNG ADENOCARCINOMA METASTATIC
     Dosage: 140 MG, UNK

REACTIONS (5)
  - Lung adenocarcinoma metastatic [Fatal]
  - Pneumonia [Not Recovered/Not Resolved]
  - Disease progression [Fatal]
  - Dyspnoea [Not Recovered/Not Resolved]
  - Hypoxia [Fatal]

NARRATIVE: CASE EVENT DATE: 20141218
